FAERS Safety Report 21917916 (Version 14)
Quarter: 2023Q4

REPORT INFORMATION
  Report Type: Other
  Country: AR (occurrence: None)
  Receive Date: 20230127
  Receipt Date: 20231101
  Transmission Date: 20240110
  Serious: Yes (Death, Life-Threatening, Hospitalization, Other)
  Sender: FDA-Public Use
  Company Number: AR-ROCHE-3271367

PATIENT
  Age: 44 Year
  Sex: Male
  Weight: 65 kg

DRUGS (15)
  1. POLATUZUMAB VEDOTIN [Suspect]
     Active Substance: POLATUZUMAB VEDOTIN
     Indication: Diffuse large B-cell lymphoma refractory
     Dosage: CYCLE 1. ON 27/FEB/2023, HE RECEIVED LAST DOSE OF POLIVY BEFORE THE START OF THE EVENT.?ON 22/MAR/20
     Route: 042
     Dates: start: 20230116
  2. POLATUZUMAB VEDOTIN [Suspect]
     Active Substance: POLATUZUMAB VEDOTIN
     Dosage: CYCLE 2
     Route: 042
     Dates: start: 20230206
  3. POLATUZUMAB VEDOTIN [Suspect]
     Active Substance: POLATUZUMAB VEDOTIN
     Dosage: CYCLE 3
     Route: 042
     Dates: start: 20230227
  4. POLATUZUMAB VEDOTIN [Suspect]
     Active Substance: POLATUZUMAB VEDOTIN
     Dosage: CYCLE 4
     Route: 042
     Dates: start: 20230322
  5. RITUXIMAB [Suspect]
     Active Substance: RITUXIMAB
     Indication: Diffuse large B-cell lymphoma refractory
     Dosage: FREQUENCY WAS NOT REPORTED CYCLE 1
     Route: 041
     Dates: start: 20230116
  6. RITUXIMAB [Suspect]
     Active Substance: RITUXIMAB
     Dosage: CYCLE 2
     Route: 041
     Dates: start: 20230206
  7. RITUXIMAB [Suspect]
     Active Substance: RITUXIMAB
     Dosage: CYCLE 3
     Route: 041
     Dates: start: 20230227
  8. RITUXIMAB [Suspect]
     Active Substance: RITUXIMAB
     Dosage: CYCLE 4
     Route: 041
     Dates: start: 20230322
  9. BENDAMUSTINE [Suspect]
     Active Substance: BENDAMUSTINE
     Indication: Diffuse large B-cell lymphoma refractory
     Dosage: FREQUENCY WAS NOT REPORTED CYCLE 1
     Route: 042
     Dates: start: 20230116
  10. ACYCLOVIR [Concomitant]
     Active Substance: ACYCLOVIR
     Indication: Antiviral prophylaxis
     Route: 065
  11. BACTRIM [Concomitant]
     Active Substance: SULFAMETHOXAZOLE\TRIMETHOPRIM
     Indication: Antifungal prophylaxis
     Route: 065
  12. PREDNISONE [Concomitant]
     Active Substance: PREDNISONE
     Indication: Nervous system disorder
     Route: 065
  13. CYTARABINE [Concomitant]
     Active Substance: CYTARABINE
  14. DEXAMETHASONE [Concomitant]
     Active Substance: DEXAMETHASONE
  15. METHOTREXATE [Concomitant]
     Active Substance: METHOTREXATE

REACTIONS (7)
  - Facial paralysis [Not Recovered/Not Resolved]
  - COVID-19 [Recovered/Resolved]
  - Febrile neutropenia [Recovered/Resolved]
  - Thrombophlebitis [Recovered/Resolved]
  - Pneumonia [Recovered/Resolved]
  - Diarrhoea [Recovered/Resolved]
  - Disease progression [Fatal]

NARRATIVE: CASE EVENT DATE: 20230117
